FAERS Safety Report 18357208 (Version 1)
Quarter: 2020Q4

REPORT INFORMATION
  Report Type: Report from Study
  Country: CO (occurrence: CO)
  Receive Date: 20201007
  Receipt Date: 20201007
  Transmission Date: 20210114
  Serious: Yes (Other)
  Sender: FDA-Public Use
  Company Number: CO-JNJFOC-20200944093

PATIENT
  Age: 39 Year
  Sex: Female
  Weight: 80 kg

DRUGS (3)
  1. STELARA [Suspect]
     Active Substance: USTEKINUMAB
     Indication: PSORIASIS
     Route: 058
     Dates: start: 20180402
  2. ACETAMINOFEN [Concomitant]
     Active Substance: ACETAMINOPHEN
  3. LORATADINE. [Concomitant]
     Active Substance: LORATADINE

REACTIONS (1)
  - COVID-19 [Recovering/Resolving]

NARRATIVE: CASE EVENT DATE: 202009
